FAERS Safety Report 13190301 (Version 1)
Quarter: 2017Q1

REPORT INFORMATION
  Report Type: Spontaneous
  Country: DE (occurrence: DE)
  Receive Date: 20170206
  Receipt Date: 20170206
  Transmission Date: 20170428
  Serious: Yes (Hospitalization)
  Sender: FDA-Public Use
  Company Number: DE-PFIZER INC-2017048199

PATIENT
  Sex: Male

DRUGS (1)
  1. UNACID [Suspect]
     Active Substance: AMPICILLIN SODIUM\SULBACTAM SODIUM
     Dosage: UNK
     Route: 041

REACTIONS (3)
  - Extravasation [Unknown]
  - Joint stiffness [Unknown]
  - Peripheral swelling [Recovering/Resolving]
